FAERS Safety Report 25713010 (Version 1)
Quarter: 2025Q3

REPORT INFORMATION
  Report Type: Spontaneous
  Country: US (occurrence: US)
  Receive Date: 20250821
  Receipt Date: 20250821
  Transmission Date: 20251021
  Serious: No
  Sender: SANOFI AVENTIS
  Company Number: US-SA-2025SA248398

PATIENT
  Sex: Female
  Weight: 61.36 kg

DRUGS (11)
  1. KEVZARA [Suspect]
     Active Substance: SARILUMAB
     Indication: Rheumatoid arthritis
     Dosage: 200 MG, QOW
     Route: 058
  2. ATENOLOL [Concomitant]
     Active Substance: ATENOLOL
  3. POTASSIUM [Concomitant]
     Active Substance: POTASSIUM
  4. SULFASALAZINE [Concomitant]
     Active Substance: SULFASALAZINE
  5. NIFEDIPINE [Concomitant]
     Active Substance: NIFEDIPINE
  6. CABERGOLINE [Concomitant]
     Active Substance: CABERGOLINE
  7. METHOTREXATE [Concomitant]
     Active Substance: METHOTREXATE
  8. SEASONIQUE [Concomitant]
     Active Substance: ETHINYL ESTRADIOL\LEVONORGESTREL
  9. SPIRONOLACTONE [Concomitant]
     Active Substance: SPIRONOLACTONE
  10. PLAQUENIL [Concomitant]
     Active Substance: HYDROXYCHLOROQUINE SULFATE
  11. LACTOBACILLUS ACIDOPHILUS [Concomitant]
     Active Substance: LACTOBACILLUS ACIDOPHILUS

REACTIONS (1)
  - Injection site reaction [Unknown]
